FAERS Safety Report 6692575-7 (Version None)
Quarter: 2010Q2

REPORT INFORMATION
  Report Type: 
  Country: None (occurrence: None)
  Receive Date: 20100422
  Receipt Date: 20100414
  Transmission Date: 20101027
  Serious: Yes (Hospitalization)
  Sender: FDA-Public Use
  Company Number: JP-PFIZER INC-2009253427

PATIENT
  Age: 58 Year
  Sex: Female
  Weight: 59 kg

DRUGS (21)
  1. CAPECITABINE [Suspect]
     Indication: BREAST CANCER
     Dosage: 1450 MG, 2X/DAY
     Route: 048
     Dates: start: 20090402
  2. CAPECITABINE [Suspect]
     Dosage: 1100 MG, 2X/DAY
     Route: 048
     Dates: start: 20090430, end: 20090506
  3. CAPECITABINE [Suspect]
     Dosage: 1100 MG, 2X/DAY
     Route: 048
     Dates: start: 20090514, end: 20090527
  4. CAPECITABINE [Suspect]
     Dosage: 1200 MG, 2X/DAY
     Route: 048
     Dates: start: 20090604, end: 20090610
  5. CAPECITABINE [Suspect]
     Dosage: 1100 MG, 2X/DAY
     Route: 048
     Dates: start: 20090611, end: 20090617
  6. CAPECITABINE [Suspect]
     Dosage: 1200 MG, 2X/DAY
     Route: 048
     Dates: start: 20090625, end: 20090708
  7. CAPECITABINE [Suspect]
     Dosage: 1200 MG, 2X/DAY
     Route: 048
     Dates: start: 20090718, end: 20090729
  8. CAPECITABINE [Suspect]
     Dosage: 1200 MG, 2X/DAY
     Route: 048
     Dates: start: 20090806
  9. SUNITINIB MALATE [Suspect]
     Indication: BREAST CANCER
     Dosage: 37.5 MG, 1X/DAY
     Route: 048
     Dates: start: 20090402, end: 20090422
  10. SUNITINIB MALATE [Suspect]
     Dosage: 25 MG, 1X/DAY
     Route: 048
     Dates: start: 20090423, end: 20090617
  11. SUNITINIB MALATE [Suspect]
     Dosage: 37.5 MG, 1X/DAY
     Route: 048
     Dates: start: 20090618, end: 20090716
  12. SUNITINIB MALATE [Suspect]
     Dosage: 37.5 MG, 1X/DAY
     Route: 048
     Dates: start: 20090718, end: 20090805
  13. SUNITINIB MALATE [Suspect]
     Dosage: 25 MG, 1X/DAY
     Route: 048
     Dates: start: 20090806
  14. CANDESARTAN CILEXETIL [Concomitant]
     Indication: HYPERTENSION
     Dosage: UNK
     Route: 048
     Dates: start: 20090522
  15. LACTOMIN [Concomitant]
     Indication: IRRITABLE BOWEL SYNDROME
  16. UREA [Concomitant]
     Dosage: UNK
     Route: 062
     Dates: start: 20090402
  17. NIFEDIPINE [Concomitant]
     Indication: HYPERTENSION
     Dosage: UNK
     Route: 048
     Dates: start: 20090522
  18. PYRIDOXAL PHOSPHATE HYDRATE [Concomitant]
     Dosage: UNK
     Route: 048
     Dates: start: 20090718
  19. ACETAMINOPHEN [Concomitant]
     Indication: HEADACHE
     Dates: start: 20090718
  20. OFLOXACIN [Concomitant]
     Indication: CONJUNCTIVITIS
     Dates: start: 20090718
  21. DIFLUPREDNATE [Concomitant]
     Route: 062
     Dates: start: 20090702

REACTIONS (2)
  - HYPOPROTEINAEMIA [None]
  - MALAISE [None]
